FAERS Safety Report 6175861-9 (Version None)
Quarter: 2009Q2

REPORT INFORMATION
  Report Type: 
  Country: None (occurrence: None)
  Receive Date: 20090501
  Receipt Date: 20090424
  Transmission Date: 20091009
  Serious: Yes (Hospitalization, Other)
  Sender: FDA-Public Use
  Company Number: US-ASTRAZENECA-2009UW10351

PATIENT
  Age: 79 Year
  Sex: Male

DRUGS (10)
  1. SEROQUEL [Suspect]
     Route: 048
  2. ATIVAN [Concomitant]
     Indication: AGITATION
  3. FAZACLO ODT [Concomitant]
  4. HALDOL [Concomitant]
  5. PROVIGIL [Concomitant]
  6. LUNESTA [Concomitant]
  7. LEXAPRO [Concomitant]
  8. CYMBALTA [Concomitant]
  9. THORAZINE [Concomitant]
  10. DEPAKOTE [Concomitant]

REACTIONS (7)
  - ABASIA [None]
  - COMMUNICATION DISORDER [None]
  - IMPAIRED SELF-CARE [None]
  - INCONTINENCE [None]
  - POSTURE ABNORMAL [None]
  - URINARY TRACT INFECTION [None]
  - WEIGHT DECREASED [None]
